FAERS Safety Report 25702476 (Version 1)
Quarter: 2025Q3

REPORT INFORMATION
  Report Type: Report from Study
  Country: US (occurrence: US)
  Receive Date: 20250819
  Receipt Date: 20250819
  Transmission Date: 20251020
  Serious: Yes (Hospitalization)
  Sender: ABBVIE
  Company Number: US-ABBVIE-6417368

PATIENT
  Sex: Female

DRUGS (1)
  1. SKYRIZI [Suspect]
     Active Substance: RISANKIZUMAB-RZAA
     Indication: Crohn^s disease
     Route: 058
     Dates: start: 20230619

REACTIONS (5)
  - Gastrointestinal microorganism overgrowth [Recovering/Resolving]
  - Abdominal distension [Unknown]
  - Pain [Unknown]
  - Secretion discharge [Unknown]
  - Inflammation [Unknown]
